FAERS Safety Report 10082375 (Version 1)
Quarter: 2014Q2

REPORT INFORMATION
  Report Type: Spontaneous
  Country: US (occurrence: None)
  Receive Date: 20140415
  Receipt Date: 20140415
  Transmission Date: 20141212
  Serious: Yes (Disabling)
  Sender: FDA-Public Use
  Company Number: None

PATIENT
  Age: 42 Year
  Sex: Female
  Weight: 92.99 kg

DRUGS (1)
  1. ZI XIU TANG BEE POLLEN CAPSULES [Suspect]
     Indication: WEIGHT DECREASED
     Dosage: 2 PILLS ?ONCE DAILY?TAKEN BY MOUTH
     Route: 048

REACTIONS (3)
  - Hypertension [None]
  - Anxiety [None]
  - Memory impairment [None]
